FAERS Safety Report 6810587-7 (Version None)
Quarter: 2010Q2

REPORT INFORMATION
  Report Type: 
  Country: None (occurrence: None)
  Receive Date: 20100630
  Receipt Date: 20100624
  Transmission Date: 20101027
  Serious: Yes (Death)
  Sender: FDA-Public Use
  Company Number: US-CELGENEUS-163-20785-10051378

PATIENT
  Sex: Male

DRUGS (3)
  1. THALOMID [Suspect]
     Indication: MYELOFIBROSIS
     Route: 048
     Dates: start: 20100324, end: 20100421
  2. THALOMID [Suspect]
     Route: 048
     Dates: start: 20090901, end: 20090101
  3. REVLIMID [Suspect]
     Indication: MYELOFIBROSIS
     Route: 048
     Dates: start: 20091201

REACTIONS (2)
  - ANAEMIA [None]
  - DISEASE PROGRESSION [None]
